FAERS Safety Report 13193194 (Version 1)
Quarter: 2017Q1

REPORT INFORMATION
  Report Type: Spontaneous
  Country: GB (occurrence: GB)
  Receive Date: 20170207
  Receipt Date: 20170207
  Transmission Date: 20170428
  Serious: Yes (Hospitalization, Other)
  Sender: FDA-Public Use
  Company Number: GB-HERITAGE PHARMACEUTICALS-2017HTG00014

PATIENT
  Age: 47 Year
  Sex: Male

DRUGS (5)
  1. DIAZEPAM. [Suspect]
     Active Substance: DIAZEPAM
     Dosage: 420 MG, ONCE
     Route: 065
  2. OLANZAPINE. [Suspect]
     Active Substance: OLANZAPINE
     Dosage: 1.16 G, ONCE
     Route: 065
  3. VENLAFAXINE HYDROCHLORIDE. [Suspect]
     Active Substance: VENLAFAXINE HYDROCHLORIDE
     Dosage: 11.7 G, ONCE
     Route: 065
  4. CHAMPAGNE [Suspect]
     Active Substance: WINE
     Dosage: 1.5 BOTTLES
     Route: 065
  5. ZOPICLONE [Suspect]
     Active Substance: ZOPICLONE
     Dosage: 735 MG, ONCE
     Route: 065

REACTIONS (10)
  - Rhabdomyolysis [Unknown]
  - Multiple organ dysfunction syndrome [Recovering/Resolving]
  - Hyperkalaemia [Unknown]
  - Overdose [Recovered/Resolved]
  - Electrocardiogram QT prolonged [Unknown]
  - Loss of consciousness [Unknown]
  - Tachycardia [Unknown]
  - Hyperthermia [Unknown]
  - Hypotension [Unknown]
  - Acidosis [Unknown]
